FAERS Safety Report 17808205 (Version 3)
Quarter: 2020Q2

REPORT INFORMATION
  Report Type: Spontaneous
  Country: CN (occurrence: CN)
  Receive Date: 20200520
  Receipt Date: 20200602
  Transmission Date: 20200714
  Serious: Yes (Death, Other)
  Sender: FDA-Public Use
  Company Number: CN-BAYER-2020-088590

PATIENT
  Age: 47 Year
  Sex: Male

DRUGS (11)
  1. METHYLPREDNISOLONE. [Concomitant]
     Active Substance: METHYLPREDNISOLONE
     Indication: INFECTION
     Dosage: 40 MG, BID
     Dates: start: 20200202, end: 20200212
  2. AVELOX [Suspect]
     Active Substance: MOXIFLOXACIN HYDROCHLORIDE
     Indication: COVID-19 PNEUMONIA
     Dosage: 0.4 G, QD
     Dates: start: 20200126
  3. DOXOFYLLINE [Concomitant]
     Active Substance: DOXOFYLLINE
     Indication: ASTHMA
     Dosage: UNK
     Dates: start: 20200126
  4. MAGNESIUM ISOGLYCYRRHIZINATE [Concomitant]
     Active Substance: MAGNESIUM ISOGLYCYRRHIZINATE
     Indication: HEPATOBILLIARY DISORDER PROPHYLAXIS
     Dosage: UNK
     Dates: start: 20200126
  5. PANTOPRAZOLE [Concomitant]
     Active Substance: PANTOPRAZOLE
     Indication: GASTROINTESTINAL DISORDER PROPHYLAXIS
     Dosage: UNK
     Dates: start: 20200126
  6. NUTRIENTS NOS [Concomitant]
     Active Substance: UNSPECIFIED INGREDIENT
     Dosage: UNK
     Dates: start: 20200126
  7. KALETRA [Concomitant]
     Active Substance: LOPINAVIR\RITONAVIR
     Dosage: 500 MG, BID
     Dates: start: 20200128, end: 20200212
  8. HUMAN IMMUNOGLOBULIN [Concomitant]
     Indication: INFECTION
     Dosage: 10 G, QD
     Dates: start: 20200127, end: 20200131
  9. CEFTAZIDIME. [Concomitant]
     Active Substance: CEFTAZIDIME
     Indication: INFECTION
     Dosage: 2.0 G, BID
     Dates: start: 20200126, end: 20200206
  10. METHYLPREDNISOLONE. [Concomitant]
     Active Substance: METHYLPREDNISOLONE
     Indication: INFECTION
     Dosage: 80 MG, BID
     Dates: start: 20200126, end: 20200202
  11. ARBIDOL [Concomitant]
     Active Substance: UMIFENOVIR
     Dosage: 0.2 G, TID
     Dates: start: 20200131, end: 20200212

REACTIONS (16)
  - Product use in unapproved indication [None]
  - White blood cell count increased [None]
  - Death [Fatal]
  - Fibrin D dimer increased [None]
  - Off label use [None]
  - Chest discomfort [None]
  - Neutrophil count increased [None]
  - Alanine aminotransferase increased [None]
  - Aspartate aminotransferase increased [None]
  - C-reactive protein increased [None]
  - Dyspnoea [None]
  - Procalcitonin increased [None]
  - Oxygen saturation decreased [None]
  - Lymphocyte count decreased [None]
  - Blood albumin decreased [None]
  - Respiration abnormal [None]

NARRATIVE: CASE EVENT DATE: 2020
